FAERS Safety Report 7641127-0 (Version None)
Quarter: 2011Q3

REPORT INFORMATION
  Report Type: 
  Country: None (occurrence: None)
  Receive Date: 20110728
  Receipt Date: 20110715
  Transmission Date: 20111222
  Serious: Yes (Hospitalization)
  Sender: FDA-Public Use
  Company Number: DE-ELI_LILLY_AND_COMPANY-DE201107004379

PATIENT
  Age: 45 Year
  Sex: Male
  Weight: 105 kg

DRUGS (7)
  1. VALPROATE SODIUM [Concomitant]
     Dosage: 2000 MG, QD
     Route: 048
     Dates: start: 20110124, end: 20110303
  2. LORAZEPAM [Concomitant]
     Dosage: 3 MG, QD
     Route: 048
     Dates: start: 20110121, end: 20110223
  3. ZYPREXA [Suspect]
     Dosage: 20 MG, QD
     Route: 048
     Dates: start: 20110209, end: 20110303
  4. PANTOPRAZOLE [Concomitant]
     Dosage: 40 MG, QD
     Route: 048
     Dates: start: 20110221, end: 20110303
  5. IBUPROFEN TABLETS [Concomitant]
     Dosage: 3 DF, QD
     Route: 048
     Dates: start: 20110221, end: 20110228
  6. ACC AKUT [Concomitant]
     Dosage: 1 DF, QD
     Route: 048
     Dates: start: 20110219, end: 20110221
  7. SEROQUEL [Concomitant]
     Dosage: 1000 MG, QD
     Route: 048
     Dates: start: 20110117, end: 20110304

REACTIONS (2)
  - HEPATIC STEATOSIS [None]
  - HEPATITIS ACUTE [None]
